FAERS Safety Report 15426901 (Version 7)
Quarter: 2019Q3

REPORT INFORMATION
  Report Type: Report from Study
  Country: US (occurrence: US)
  Receive Date: 20180925
  Receipt Date: 20190920
  Transmission Date: 20191004
  Serious: Yes (Hospitalization, Other)
  Sender: FDA-Public Use
  Company Number: US-ACTELION-A-NJ2018-178676

PATIENT
  Sex: Female
  Weight: 53.52 kg

DRUGS (3)
  1. ADCIRCA [Concomitant]
     Active Substance: TADALAFIL
  2. OPSUMIT [Suspect]
     Active Substance: MACITENTAN
     Indication: PULMONARY ARTERIAL HYPERTENSION
     Dosage: 10 MG, QD
     Route: 048
  3. ORENITRAM [Concomitant]
     Active Substance: TREPROSTINIL
     Dosage: 1 MG, TID
     Route: 048

REACTIONS (20)
  - Seizure [Unknown]
  - Weight increased [Unknown]
  - Abdominal discomfort [Unknown]
  - Mood altered [Unknown]
  - Condition aggravated [Unknown]
  - Gastrooesophageal reflux disease [Unknown]
  - Decreased appetite [Unknown]
  - Peripheral swelling [Unknown]
  - Anger [Unknown]
  - Pulmonary arterial hypertension [Unknown]
  - Emotional disorder [Unknown]
  - Headache [Unknown]
  - Suicidal ideation [Unknown]
  - Fatigue [Unknown]
  - Panic attack [Unknown]
  - Anaemia [Unknown]
  - Depressed mood [Unknown]
  - Hospitalisation [Unknown]
  - Heart rate increased [Unknown]
  - Asthenia [Unknown]
